FAERS Safety Report 7578541-8 (Version None)
Quarter: 2011Q2

REPORT INFORMATION
  Report Type: 
  Country: None (occurrence: None)
  Receive Date: 20110628
  Receipt Date: 20110614
  Transmission Date: 20111010
  Serious: Yes (Other)
  Sender: FDA-Public Use
  Company Number: CA-JNJFOC-20110600934

PATIENT
  Sex: Female
  Weight: 58.6 kg

DRUGS (5)
  1. CALCIUM CARBONATE [Concomitant]
     Route: 065
  2. REMICADE [Suspect]
     Indication: CROHN'S DISEASE
     Route: 042
     Dates: start: 20090129
  3. VITAMIN D [Concomitant]
     Route: 065
  4. EFFEXOR [Concomitant]
     Route: 065
  5. UNKNOWN MEDICATION [Concomitant]

REACTIONS (1)
  - CARPAL TUNNEL SYNDROME [None]
